FAERS Safety Report 7504114-9 (Version None)
Quarter: 2011Q2

REPORT INFORMATION
  Report Type: 
  Country: None (occurrence: None)
  Receive Date: 20110525
  Receipt Date: 20110523
  Transmission Date: 20111010
  Serious: Yes (Other)
  Sender: FDA-Public Use
  Company Number: US-PFIZER INC-2011111913

PATIENT
  Sex: Female

DRUGS (1)
  1. EFFEXOR XR [Suspect]
     Indication: ARTIFICIAL MENOPAUSE
     Dosage: 37.5 MG, UNK
     Route: 048

REACTIONS (1)
  - HEPATIC FUNCTION ABNORMAL [None]
